FAERS Safety Report 8011676-4 (Version None)
Quarter: 2011Q4

REPORT INFORMATION
  Report Type: 
  Country: None (occurrence: None)
  Receive Date: 20111228
  Receipt Date: 20111223
  Transmission Date: 20120403
  Serious: Yes (Hospitalization)
  Sender: FDA-Public Use
  Company Number: RU-ABBOTT-11P-251-0882900-00

PATIENT
  Age: 36 Year
  Sex: Male
  Weight: 78 kg

DRUGS (4)
  1. NIMESULID [Concomitant]
     Indication: ANKYLOSING SPONDYLITIS
     Dates: start: 20080115
  2. HUMIRA [Suspect]
     Indication: ANKYLOSING SPONDYLITIS
     Route: 058
     Dates: start: 20100813, end: 20100907
  3. HUMIRA [Suspect]
     Dates: start: 20101120
  4. SULFASALASIN [Concomitant]
     Indication: ANKYLOSING SPONDYLITIS
     Dates: start: 20080115

REACTIONS (2)
  - BRONCHITIS [None]
  - RALES [None]
